FAERS Safety Report 6490842-3 (Version None)
Quarter: 2009Q4

REPORT INFORMATION
  Report Type: 
  Country: None (occurrence: None)
  Receive Date: 20091124
  Receipt Date: 20090526
  Transmission Date: 20100525
  Serious: Yes (Other)
  Sender: FDA-Public Use
  Company Number: 281147

PATIENT
  Age: 64 Year
  Sex: Female
  Weight: 87.5 kg

DRUGS (10)
  1. HERCEPTIN [Suspect]
     Indication: BREAST CANCER
     Dosage: 360 UNK, X1; 180 UNK, 1/WEEK
     Dates: start: 20090310, end: 20090310
  2. HERCEPTIN [Suspect]
     Indication: BREAST CANCER
     Dosage: 360 UNK, X1; 180 UNK, 1/WEEK
     Dates: end: 20090317
  3. TAXOL [Concomitant]
  4. ALOXI [Concomitant]
  5. DEXAMETHASONE TAB [Concomitant]
  6. BENADRYL [Concomitant]
  7. TAGAMET [Concomitant]
  8. NEULASTA [Concomitant]
  9. PROCRIT [Concomitant]
  10. TYLENOL (CAPLET) [Concomitant]

REACTIONS (1)
  - EJECTION FRACTION DECREASED [None]
